FAERS Safety Report 4440860-1 (Version None)
Quarter: 2004Q3

REPORT INFORMATION
  Report Type: 
  Country: None (occurrence: None)
  Receive Date: 20040831
  Receipt Date: 20040825
  Transmission Date: 20050211
  Serious: Yes (Death)
  Sender: FDA-Public Use
  Company Number: 2004UW18123

PATIENT
  Age: 41 Year
  Sex: Male
  Weight: 76.2043 kg

DRUGS (3)
  1. SEROQUEL [Suspect]
     Dates: start: 20031001
  2. HALDOL [Concomitant]
  3. TEGRETOL [Concomitant]

REACTIONS (2)
  - ABNORMAL BEHAVIOUR [None]
  - CONVULSION [None]
